FAERS Safety Report 7135264-7 (Version None)
Quarter: 2010Q4

REPORT INFORMATION
  Report Type: 
  Country: None (occurrence: None)
  Receive Date: 20101203
  Receipt Date: 20101129
  Transmission Date: 20110411
  Serious: Yes (Other)
  Sender: FDA-Public Use
  Company Number: A0873462A

PATIENT
  Age: 77 Year
  Sex: Female

DRUGS (14)
  1. PROMACTA [Suspect]
     Indication: IDIOPATHIC THROMBOCYTOPENIC PURPURA
     Dosage: 1CAP PER DAY
     Route: 048
     Dates: start: 20100728, end: 20100802
  2. LASIX [Concomitant]
  3. CELEBREX [Concomitant]
  4. UNKNOWN [Concomitant]
  5. UNKNOWN [Concomitant]
  6. CALCIUM [Concomitant]
  7. ULTRAM [Concomitant]
  8. BLOOD PRESSURE MEDICATION [Concomitant]
  9. PREDNISONE [Concomitant]
     Indication: IDIOPATHIC THROMBOCYTOPENIC PURPURA
  10. ZOCOR [Concomitant]
     Indication: BLOOD CHOLESTEROL INCREASED
  11. ALLOPURINOL [Concomitant]
  12. UNKNOWN [Concomitant]
  13. UNKNOWN [Concomitant]
  14. DANAZOL [Concomitant]

REACTIONS (6)
  - ASTHENIA [None]
  - BLINDNESS [None]
  - CONTUSION [None]
  - FALL [None]
  - NAUSEA [None]
  - VISION BLURRED [None]
